FAERS Safety Report 11548683 (Version 1)
Quarter: 2015Q3

REPORT INFORMATION
  Report Type: Spontaneous
  Country: US (occurrence: US)
  Receive Date: 20150924
  Receipt Date: 20150924
  Transmission Date: 20151125
  Serious: Yes (Other)
  Sender: FDA-Public Use
  Company Number: US-FRI-1000079717

PATIENT
  Age: 50 Year
  Sex: Female

DRUGS (12)
  1. TRAMADOL. [Interacting]
     Active Substance: TRAMADOL
  2. MOTRIN [Concomitant]
     Active Substance: IBUPROFEN
  3. COLCRYS [Concomitant]
     Active Substance: COLCHICINE
  4. ATIVAN [Concomitant]
     Active Substance: LORAZEPAM
  5. CELEXA [Suspect]
     Active Substance: CITALOPRAM HYDROBROMIDE
     Indication: ANXIETY
     Dosage: 10MG
     Route: 048
     Dates: start: 201508, end: 201508
  6. CELEXA [Interacting]
     Active Substance: CITALOPRAM HYDROBROMIDE
     Indication: MOOD SWINGS
  7. UNSPECIFIED LAXATIVES [Concomitant]
  8. FLOVENT [Concomitant]
     Active Substance: FLUTICASONE PROPIONATE
  9. TYLENOL EXTRA STRENGTH [Concomitant]
     Active Substance: ACETAMINOPHEN
  10. ZOFRAN [Interacting]
     Active Substance: ONDANSETRON HYDROCHLORIDE
  11. PROTONIX [Concomitant]
     Active Substance: PANTOPRAZOLE SODIUM
  12. CELEXA [Interacting]
     Active Substance: CITALOPRAM HYDROBROMIDE
     Indication: TACHYCARDIA

REACTIONS (3)
  - Drug interaction [Unknown]
  - Serotonin syndrome [Recovering/Resolving]
  - Off label use [Recovered/Resolved]

NARRATIVE: CASE EVENT DATE: 201508
